FAERS Safety Report 13748098 (Version 4)
Quarter: 2017Q3

REPORT INFORMATION
  Report Type: Spontaneous
  Country: US (occurrence: US)
  Receive Date: 20170713
  Receipt Date: 20170731
  Transmission Date: 20171127
  Serious: No
  Sender: FDA-Public Use
  Company Number: US-BIOGEN-2017BI00429003

PATIENT
  Age: 52 Year
  Sex: Female

DRUGS (2)
  1. AUBAGIO [Concomitant]
     Active Substance: TERIFLUNOMIDE
     Indication: PRODUCT USED FOR UNKNOWN INDICATION
     Route: 065
  2. TECFIDERA [Suspect]
     Active Substance: DIMETHYL FUMARATE
     Indication: MULTIPLE SCLEROSIS
     Route: 065
     Dates: start: 201403, end: 201609

REACTIONS (11)
  - Nail growth abnormal [Unknown]
  - Swelling [Unknown]
  - Vomiting [Recovered/Resolved]
  - Gait disturbance [Unknown]
  - Malaise [Unknown]
  - Weight increased [Unknown]
  - Palpitations [Unknown]
  - Infection [Recovered/Resolved]
  - Decreased immune responsiveness [Unknown]
  - Multiple sclerosis [Unknown]
  - Nausea [Recovered/Resolved]

NARRATIVE: CASE EVENT DATE: 201409
